FAERS Safety Report 22212799 (Version 2)
Quarter: 2023Q2

REPORT INFORMATION
  Report Type: Spontaneous
  Country: RU (occurrence: RU)
  Receive Date: 20230414
  Receipt Date: 20230608
  Transmission Date: 20230721
  Serious: Yes (Other)
  Sender: FDA-Public Use
  Company Number: RU-ALXN-A202304647

PATIENT
  Age: 7 Year
  Sex: Female
  Weight: 20 kg

DRUGS (3)
  1. STRENSIQ [Suspect]
     Active Substance: ASFOTASE ALFA
     Indication: Hypophosphatasia
     Dosage: 40.0 MG/ML , 1 ML, SC, ONCE EVERY THREE DAYS
     Route: 058
     Dates: start: 201806
  2. MULTIVITAMINS                      /00116001/ [Concomitant]
     Indication: Product used for unknown indication
     Dosage: UNK
     Route: 048
  3. 4-AMINO-3-PHENYLBUTYRIC ACID [Concomitant]
     Active Substance: 4-AMINO-3-PHENYLBUTYRIC ACID
     Indication: Product used for unknown indication
     Dosage: 250.0 MG, 1-2 TIMES A DAY
     Route: 048

REACTIONS (3)
  - Seizure [Unknown]
  - Paroxysmal extreme pain disorder [Not Recovered/Not Resolved]
  - Dyspnoea [Recovered/Resolved]

NARRATIVE: CASE EVENT DATE: 20230201
